FAERS Safety Report 23222699 (Version 1)
Quarter: 2023Q4

REPORT INFORMATION
  Report Type: Spontaneous
  Country: US (occurrence: None)
  Receive Date: 20231123
  Receipt Date: 20231123
  Transmission Date: 20240109
  Serious: No
  Sender: FDA-Public Use
  Company Number: 2023A266946

PATIENT
  Age: 68 Year
  Sex: Male

DRUGS (1)
  1. PRILOSEC OTC [Suspect]
     Active Substance: OMEPRAZOLE MAGNESIUM
     Dosage: UNK, DAILY
     Route: 048

REACTIONS (3)
  - Limb injury [Unknown]
  - Product package associated injury [Unknown]
  - Product packaging difficult to open [Unknown]
